FAERS Safety Report 7075425-9 (Version None)
Quarter: 2010Q4

REPORT INFORMATION
  Report Type: 
  Country: None (occurrence: None)
  Receive Date: 20101030
  Receipt Date: 20100909
  Transmission Date: 20110411
  Serious: No
  Sender: FDA-Public Use
  Company Number: US-WYE-H17498210

PATIENT
  Sex: Female
  Weight: 75.36 kg

DRUGS (9)
  1. PRISTIQ [Suspect]
     Indication: DEPRESSION
     Route: 048
     Dates: start: 20100701
  2. METOPROLOL [Concomitant]
  3. ASPIRIN [Concomitant]
  4. SYNTHROID [Concomitant]
  5. CRESTOR [Concomitant]
  6. LASIX [Concomitant]
  7. LOSARTAN [Concomitant]
  8. PLAVIX [Concomitant]
  9. TRICOR [Concomitant]

REACTIONS (2)
  - FATIGUE [None]
  - SOMNOLENCE [None]
